FAERS Safety Report 19956809 (Version 1)
Quarter: 2021Q4

REPORT INFORMATION
  Report Type: Spontaneous
  Country: None (occurrence: A1)
  Receive Date: 20211014
  Receipt Date: 20211014
  Transmission Date: 20220303
  Serious: Yes (Other)
  Sender: FDA-Public Use
  Company Number: A1-ARMSTRONG PHARMACEUTICALS, INC.-2120588

PATIENT

DRUGS (1)
  1. PRIMATENE MIST [Suspect]
     Active Substance: EPINEPHRINE
     Indication: Product used for unknown indication
     Route: 055

REACTIONS (3)
  - Drug ineffective [Unknown]
  - Pharyngeal hypoaesthesia [Unknown]
  - Dyspnoea [Unknown]
